FAERS Safety Report 23299828 (Version 2)
Quarter: 2023Q4

REPORT INFORMATION
  Report Type: Report from Study
  Country: CH (occurrence: CH)
  Receive Date: 20231215
  Receipt Date: 20231224
  Transmission Date: 20240110
  Serious: Yes (Hospitalization)
  Sender: FDA-Public Use
  Company Number: CH-ABBVIE-5532229

PATIENT
  Age: 83 Year
  Sex: Female
  Weight: 67 kg

DRUGS (7)
  1. CARBIDOPA\LEVODOPA [Suspect]
     Active Substance: CARBIDOPA\LEVODOPA
     Indication: Parkinson^s disease
     Route: 050
     Dates: start: 20221103
  2. CARBIDOPA\LEVODOPA [Suspect]
     Active Substance: CARBIDOPA\LEVODOPA
     Dosage: MD 3.5ML, CRD 1.8ML/H, ED 0.5ML?FREQUENCY TEXT: 16H THERAPY
     Route: 050
     Dates: start: 20230630, end: 20230724
  3. CARBIDOPA\LEVODOPA [Suspect]
     Active Substance: CARBIDOPA\LEVODOPA
     Dosage: MD 6.0ML, CRD 1.8ML/H, ED 1.0ML?FREQUENCY TEXT: 16H THERAPY
     Route: 050
     Dates: start: 20230604, end: 20230630
  4. CARBIDOPA\LEVODOPA [Suspect]
     Active Substance: CARBIDOPA\LEVODOPA
     Dosage: MD 3.5ML, CRD 1.1ML/H, AD 1.2ML, ED 0.5ML?FREQUENCY TEXT: 16H THERAPY
     Route: 050
     Dates: start: 20230830, end: 20231120
  5. CARBIDOPA\LEVODOPA [Suspect]
     Active Substance: CARBIDOPA\LEVODOPA
     Dosage: MD 3.5ML, CRD 0.5ML/H, ED 0.5ML?FREQUENCY TEXT: 16H THERAPY
     Route: 050
     Dates: start: 20231120, end: 20231123
  6. CARBIDOPA\LEVODOPA [Suspect]
     Active Substance: CARBIDOPA\LEVODOPA
     Dosage: MD 3.5ML, CRD 0.8ML/H, ED 0.5ML?FREQUENCY TEXT: 16H THERAPY
     Route: 050
     Dates: start: 20231123, end: 20231212
  7. CARBIDOPA\LEVODOPA [Suspect]
     Active Substance: CARBIDOPA\LEVODOPA
     Dosage: MD 3.5ML, CRD 1.3ML/H, ED 0.5ML?FREQUENCY TEXT: 16H THERAPY
     Route: 050
     Dates: start: 20230724, end: 20230830

REACTIONS (5)
  - Femoral neck fracture [Not Recovered/Not Resolved]
  - Fall [Not Recovered/Not Resolved]
  - Device dislocation [Not Recovered/Not Resolved]
  - General physical health deterioration [Not Recovered/Not Resolved]
  - Anaesthesia [Recovered/Resolved]

NARRATIVE: CASE EVENT DATE: 20231201
